FAERS Safety Report 4285858-1 (Version None)
Quarter: 2004Q1

REPORT INFORMATION
  Report Type: 
  Country: None (occurrence: None)
  Receive Date: 20040203
  Receipt Date: 20040121
  Transmission Date: 20041129
  Serious: Yes (Other)
  Sender: FDA-Public Use
  Company Number: BE-JNJFOC-20040102945

PATIENT
  Age: 14 Year
  Sex: Male

DRUGS (1)
  1. PROPULSID [Suspect]
     Indication: GASTROOESOPHAGEAL REFLUX DISEASE
     Dosage: 5 MG, 3 IN 1 DAY, ORAL
     Route: 048
     Dates: start: 20030422, end: 20030910

REACTIONS (1)
  - UNEVALUABLE EVENT [None]
